FAERS Safety Report 8844442 (Version 2)
Quarter: 2012Q4

REPORT INFORMATION
  Report Type: Report from Study
  Country: US (occurrence: US)
  Receive Date: 20121017
  Receipt Date: 20121025
  Transmission Date: 20130627
  Serious: Yes (Other)
  Sender: FDA-Public Use
  Company Number: US-ABBOTT-12P-163-0994794-00

PATIENT
  Age: 58 Year
  Sex: Female
  Weight: 107.6 kg

DRUGS (13)
  1. HUMIRA [Suspect]
     Indication: PSORIASIS
     Route: 058
  2. PRILOSEC [Concomitant]
     Indication: GASTRITIS
  3. ASPIRIN [Concomitant]
     Indication: CORONARY ARTERIAL STENT INSERTION
  4. CLARITIN [Concomitant]
     Indication: SINUS CONGESTION
  5. ALLOPURINOL [Concomitant]
     Indication: GOUT
  6. WELLBUTRIN [Concomitant]
     Indication: DEPRESSION
  7. FLUOXETINE [Concomitant]
     Indication: DEPRESSION
  8. NEURONTIN [Concomitant]
     Indication: MUSCLE SPASMS
  9. IMDUR [Concomitant]
     Indication: HYPERTENSION
  10. SINGULAIR [Concomitant]
     Indication: SINUSITIS
  11. PERCOCET [Concomitant]
     Indication: PAIN
  12. SINEMET [Concomitant]
     Indication: PARKINSON^S DISEASE
  13. ATENOLOL [Concomitant]
     Indication: HYPERTENSION

REACTIONS (4)
  - Loss of consciousness [Recovered/Resolved]
  - Skin haemorrhage [Recovered/Resolved]
  - Laceration [Not Recovered/Not Resolved]
  - Anaemia [Not Recovered/Not Resolved]
